FAERS Safety Report 5582820-3 (Version None)
Quarter: 2007Q4

REPORT INFORMATION
  Report Type: 
  Country: None (occurrence: None)
  Receive Date: 20071231
  Receipt Date: 20071218
  Transmission Date: 20080405
  Serious: Yes (Other)
  Sender: FDA-Public Use
  Company Number: 2007AL005477

PATIENT
  Age: 5 Year
  Sex: 0

DRUGS (2)
  1. ACYCLOVIR [Suspect]
     Indication: ENCEPHALOPATHY
     Dosage: 500 MG/M2; QD; IV
     Route: 042
  2. CEFOTAXIME [Concomitant]

REACTIONS (2)
  - EXTRAPYRAMIDAL DISORDER [None]
  - HALLUCINATION [None]
